FAERS Safety Report 9565559 (Version 2)
Quarter: 2013Q4

REPORT INFORMATION
  Report Type: Spontaneous
  Country: CH (occurrence: CH)
  Receive Date: 20130930
  Receipt Date: 20131011
  Transmission Date: 20140711
  Serious: Yes (Other)
  Sender: FDA-Public Use
  Company Number: CH-CELGENEUS-151-21880-13092506

PATIENT
  Age: 59 Year
  Sex: Female

DRUGS (11)
  1. REVLIMID [Suspect]
     Indication: PLASMA CELL MYELOMA
     Route: 048
     Dates: start: 20090106, end: 20090623
  2. REVLIMID [Suspect]
     Route: 048
     Dates: start: 20120822, end: 20130612
  3. DEXAMETHASONE [Concomitant]
     Indication: PLASMA CELL MYELOMA
     Route: 065
     Dates: start: 20031006, end: 20031220
  4. DEXAMETHASONE [Concomitant]
     Route: 065
     Dates: start: 20070410, end: 20070724
  5. DEXAMETHASONE [Concomitant]
     Route: 065
     Dates: start: 20090106, end: 20090623
  6. DEXAMETHASONE [Concomitant]
     Route: 065
     Dates: start: 20090721, end: 20090928
  7. DEXAMETHASONE [Concomitant]
     Route: 065
     Dates: start: 20110210, end: 20110517
  8. DEXAMETHASONE [Concomitant]
     Route: 065
     Dates: start: 20110817, end: 20111027
  9. DEXAMETHASONE [Concomitant]
     Route: 065
     Dates: start: 20120210, end: 20120522
  10. DEXAMETHASONE [Concomitant]
     Route: 065
     Dates: start: 20120822, end: 20130612
  11. BENDAMUSTINE [Concomitant]
     Indication: PLASMA CELL MYELOMA
     Route: 065
     Dates: start: 20120822, end: 20130612

REACTIONS (1)
  - Plasmacytoma [Unknown]
